FAERS Safety Report 4534172-5 (Version None)
Quarter: 2004Q4

REPORT INFORMATION
  Report Type: 
  Country: None (occurrence: None)
  Receive Date: 20041221
  Receipt Date: 20041221
  Transmission Date: 20050328
  Serious: Yes (Life-Threatening, Other)
  Sender: FDA-Public Use
  Company Number: None

PATIENT
  Age: 83 Year
  Sex: Male
  Weight: 43.5453 kg

DRUGS (1)
  1. PLAVIX [Suspect]
     Indication: CEREBROVASCULAR ACCIDENT
     Dosage: ONE  DAILY  ORAL
     Route: 048
     Dates: start: 20010615, end: 20041114

REACTIONS (5)
  - BILE DUCT OBSTRUCTION [None]
  - HAEMATURIA [None]
  - HAEMORRHAGE [None]
  - PANCREATIC MASS [None]
  - PULMONARY FUNCTION TEST ABNORMAL [None]
